FAERS Safety Report 6868303-9 (Version None)
Quarter: 2010Q3

REPORT INFORMATION
  Report Type: 
  Country: None (occurrence: None)
  Receive Date: 20100722
  Receipt Date: 20080624
  Transmission Date: 20110219
  Serious: Yes (Other)
  Sender: FDA-Public Use
  Company Number: US-PFIZER INC-2008040967

PATIENT
  Sex: Male
  Weight: 106 kg

DRUGS (7)
  1. CHANTIX [Suspect]
     Indication: SMOKING CESSATION THERAPY
     Dates: start: 20080201
  2. PAXIL [Concomitant]
  3. OXYCONTIN [Concomitant]
  4. LIPITOR [Concomitant]
  5. PROVIGIL [Concomitant]
  6. MIRAPEX [Concomitant]
  7. VICODIN [Concomitant]

REACTIONS (2)
  - DEPRESSION [None]
  - SUICIDAL IDEATION [None]
